FAERS Safety Report 9449225 (Version 2)
Quarter: 2013Q3

REPORT INFORMATION
  Report Type: Report from Study
  Country: BR (occurrence: BR)
  Receive Date: 20130808
  Receipt Date: 20130826
  Transmission Date: 20140515
  Serious: Yes (Hospitalization)
  Sender: FDA-Public Use
  Company Number: BR-ABBOTT-13P-020-1130233-00

PATIENT
  Age: 48 Year
  Sex: Male
  Weight: 45 kg

DRUGS (12)
  1. HUMIRA [Suspect]
     Indication: PSORIASIS
     Dosage: WEEK 0
     Route: 058
  2. HUMIRA [Suspect]
     Dosage: WEEK 1
     Route: 058
  3. HUMIRA [Suspect]
     Dosage: 1 DOSE
     Route: 058
     Dates: start: 201307, end: 201307
  4. METHOTREXATE [Concomitant]
     Indication: PSORIASIS
     Route: 058
     Dates: start: 2012
  5. HYDROCHLOROTHIAZIDE [Concomitant]
     Indication: PRODUCT USED FOR UNKNOWN INDICATION
     Route: 048
     Dates: start: 2012
  6. ENALAPRIL [Concomitant]
     Indication: PRODUCT USED FOR UNKNOWN INDICATION
     Route: 048
     Dates: start: 2012
  7. NPH INSULIN [Concomitant]
     Indication: DIABETES MELLITUS
     Route: 058
     Dates: start: 2012
  8. OMEPRAZOLE [Concomitant]
     Indication: UNEVALUABLE EVENT
     Route: 048
     Dates: start: 2012
  9. GLIFAGE [Concomitant]
     Indication: DIABETES MELLITUS
     Route: 048
     Dates: start: 2012
  10. FLUOXETINE [Concomitant]
     Indication: ANXIETY
     Route: 048
     Dates: start: 2012
  11. AMARYL [Concomitant]
     Indication: PRODUCT USED FOR UNKNOWN INDICATION
     Route: 048
     Dates: start: 2012
  12. FOLIC ACID [Concomitant]
     Indication: PRODUCT USED FOR UNKNOWN INDICATION
     Route: 048
     Dates: start: 2012

REACTIONS (3)
  - Inflammation [Recovering/Resolving]
  - Fall [Unknown]
  - Diabetes mellitus [Unknown]
